FAERS Safety Report 14480450 (Version 2)
Quarter: 2018Q1

REPORT INFORMATION
  Report Type: Spontaneous
  Country: US (occurrence: US)
  Receive Date: 20180202
  Receipt Date: 20180216
  Transmission Date: 20180509
  Serious: Yes (Hospitalization)
  Sender: FDA-Public Use
  Company Number: US-VYERA PHARMACEUTICALS, LLC-2018VYE00002

PATIENT
  Age: 48 Year
  Sex: Male

DRUGS (4)
  1. DARAPRIM [Suspect]
     Active Substance: PYRIMETHAMINE
     Indication: HIV INFECTION
     Dosage: 25 MG, 1X/DAY
     Route: 048
     Dates: start: 20150914
  2. OXYCODONE/APAP [Concomitant]
     Active Substance: ACETAMINOPHEN\OXYCODONE HYDROCHLORIDE
  3. GENVOYA [Concomitant]
     Active Substance: COBICISTAT\ELVITEGRAVIR\EMTRICITABINE\TENOFOVIR ALAFENAMIDE FUMARATE
  4. OMEPRAZOLE. [Concomitant]
     Active Substance: OMEPRAZOLE

REACTIONS (4)
  - Sinusitis [Unknown]
  - Platelet disorder [Unknown]
  - Off label use [Unknown]
  - Platelet count decreased [None]

NARRATIVE: CASE EVENT DATE: 20180115
